FAERS Safety Report 15646989 (Version 2)
Quarter: 2018Q4

REPORT INFORMATION
  Report Type: Spontaneous
  Country: JP (occurrence: JP)
  Receive Date: 20181122
  Receipt Date: 20181206
  Transmission Date: 20190205
  Serious: Yes (Death, Hospitalization)
  Sender: FDA-Public Use
  Company Number: JP-ASTRAZENECA-2018SF48708

PATIENT
  Age: 84 Year
  Sex: Female
  Weight: 47 kg

DRUGS (5)
  1. TAGRISSO [Suspect]
     Active Substance: OSIMERTINIB
     Indication: NON-SMALL CELL LUNG CANCER
     Route: 048
     Dates: start: 20180910, end: 20181029
  2. DEXALTIN [Concomitant]
     Active Substance: DEXAMETHASONE
     Indication: RASH
     Dosage: ONCE TO TWICE DAILY, AS REQUIRED
     Route: 062
     Dates: start: 20180928
  3. BIOFERMIN [Concomitant]
     Active Substance: BACILLUS SUBTILIS\LACTOBACILLUS ACIDOPHILUS\STREPTOCOCCUS FAECAIS
     Indication: PROPHYLAXIS AGAINST DIARRHOEA
     Route: 048
     Dates: start: 20180921
  4. NERIZA [Concomitant]
     Indication: HAEMORRHOIDS
     Dosage: NUMBER OF SEPARATE DOSAGES UNKNOWN2.0G UNKNOWN
     Route: 062
  5. DEXAN VG [Concomitant]
     Indication: RASH
     Dosage: ONCE TO TWICE DAILY, AS REQUIRED
     Route: 062
     Dates: start: 20180913

REACTIONS (3)
  - Lung disorder [Fatal]
  - Paronychia [Recovered/Resolved]
  - Rash [Recovered/Resolved]

NARRATIVE: CASE EVENT DATE: 20181012
